FAERS Safety Report 21844166 (Version 1)
Quarter: 2023Q1

REPORT INFORMATION
  Report Type: Spontaneous
  Country: US (occurrence: US)
  Receive Date: 20230110
  Receipt Date: 20230110
  Transmission Date: 20230418
  Serious: Yes (Other)
  Sender: FDA-Public Use
  Company Number: US-TRIS PHARMA, INC.-23US010669

PATIENT

DRUGS (1)
  1. HYDROCODONE BITARTRATE AND ACETAMINOPHEN [Suspect]
     Active Substance: ACETAMINOPHEN\HYDROCODONE BITARTRATE
     Indication: Product used for unknown indication
     Dosage: UNK

REACTIONS (7)
  - Spinal fracture [Unknown]
  - Mental impairment [Unknown]
  - Road traffic accident [Unknown]
  - Sexual dysfunction [Unknown]
  - Gait inability [Unknown]
  - Product prescribing issue [Unknown]
  - Off label use [Unknown]
